FAERS Safety Report 24670111 (Version 1)
Quarter: 2024Q4

REPORT INFORMATION
  Report Type: Spontaneous
  Country: US (occurrence: US)
  Receive Date: 20241127
  Receipt Date: 20241127
  Transmission Date: 20250115
  Serious: Yes (Hospitalization)
  Sender: PFIZER
  Company Number: US-PFIZER INC-202400309357

PATIENT
  Age: 60 Year
  Sex: Male

DRUGS (1)
  1. VELSIPITY [Suspect]
     Active Substance: ETRASIMOD ARGININE
     Dosage: 2 MG, 1X/DAY
     Route: 048

REACTIONS (4)
  - Colitis ulcerative [Unknown]
  - Uveitis [Unknown]
  - Arthritis [Unknown]
  - Rash [Unknown]

NARRATIVE: CASE EVENT DATE: 20240101
